FAERS Safety Report 8016746-2 (Version None)
Quarter: 2012Q1

REPORT INFORMATION
  Report Type: 
  Country: None (occurrence: None)
  Receive Date: 20120102
  Receipt Date: 20111227
  Transmission Date: 20120608
  Serious: Yes (Hospitalization, Other)
  Sender: FDA-Public Use
  Company Number: US-BIOGENIDEC-2011BI048843

PATIENT
  Age: 42 Year
  Sex: Female

DRUGS (1)
  1. AVONEX [Suspect]
     Indication: MULTIPLE SCLEROSIS
     Route: 030

REACTIONS (6)
  - CARDIAC PACEMAKER INSERTION [None]
  - FALL [None]
  - MULTIPLE SCLEROSIS RELAPSE [None]
  - CONCUSSION [None]
  - MIGRAINE [None]
  - HYSTERECTOMY [None]
